FAERS Safety Report 7756522-9 (Version None)
Quarter: 2011Q3

REPORT INFORMATION
  Report Type: 
  Country: None (occurrence: None)
  Receive Date: 20110916
  Receipt Date: 20110906
  Transmission Date: 20111222
  Serious: Yes (Hospitalization, Other)
  Sender: FDA-Public Use
  Company Number: US-ELI_LILLY_AND_COMPANY-US201109001951

PATIENT
  Age: 82 Year
  Sex: Female

DRUGS (9)
  1. FORTEO [Suspect]
     Dosage: UNK UNK, UNKNOWN
     Route: 065
  2. EYE DROPS [Concomitant]
  3. CADUET [Concomitant]
  4. ISORBIDE [Concomitant]
  5. AVAPRO [Concomitant]
  6. PANTOPRAZOLE [Concomitant]
  7. CELEBREX [Concomitant]
  8. TOVIAZ [Concomitant]
  9. ATENOLOL [Concomitant]

REACTIONS (1)
  - GASTROINTESTINAL HAEMORRHAGE [None]
